APPROVED DRUG PRODUCT: DORYX
Active Ingredient: DOXYCYCLINE HYCLATE
Strength: EQ 100MG BASE
Dosage Form/Route: CAPSULE, DELAYED RELEASE;ORAL
Application: N050582 | Product #001
Applicant: MAYNE PHARMA INTERNATIONAL PTY LTD
Approved: Jul 22, 1985 | RLD: Yes | RS: No | Type: DISCN